FAERS Safety Report 11367991 (Version 2)
Quarter: 2015Q3

REPORT INFORMATION
  Report Type: Spontaneous
  Country: US (occurrence: US)
  Receive Date: 20150811
  Receipt Date: 20150811
  Transmission Date: 20151125
  Serious: No
  Sender: FDA-Public Use
  Company Number: US-ELI_LILLY_AND_COMPANY-US201211009405

PATIENT
  Age: 76 Year
  Sex: Male

DRUGS (2)
  1. AXIRON [Suspect]
     Active Substance: TESTOSTERONE
     Dosage: 60 MG, QD
     Route: 065
     Dates: start: 201204
  2. CIALIS [Suspect]
     Active Substance: TADALAFIL
     Dosage: 0.5 DF, UNKNOWN
     Dates: end: 20120518

REACTIONS (2)
  - No therapeutic response [Unknown]
  - Wrong technique in product usage process [Unknown]
